FAERS Safety Report 9617083 (Version 1)
Quarter: 2013Q4

REPORT INFORMATION
  Report Type: Not Available
  Country: US (occurrence: US)
  Receive Date: 20131011
  Receipt Date: 20131011
  Transmission Date: 20140711
  Serious: No
  Sender: FDA-Public Use
  Company Number: US-TARO-2012P1055258

PATIENT
  Age: 26 Month
  Sex: Male
  Weight: 15.42 kg

DRUGS (1)
  1. LORATADINE SYRUP (LORATADINE ORAL SOLUTION USP) 5MG/5ML [Suspect]
     Route: 048
     Dates: start: 20120822, end: 20120822

REACTIONS (1)
  - Urticaria [Not Recovered/Not Resolved]
